FAERS Safety Report 7561180-2 (Version None)
Quarter: 2011Q2

REPORT INFORMATION
  Report Type: 
  Country: None (occurrence: None)
  Receive Date: 20110621
  Receipt Date: 20100830
  Transmission Date: 20111010
  Serious: No
  Sender: FDA-Public Use
  Company Number: US-ASTRAZENECA-2010SE36993

PATIENT
  Age: 58 Year
  Sex: Male

DRUGS (2)
  1. PULMICORT FLEXHALER [Suspect]
     Dosage: 180 MCG BID
     Route: 055
  2. FLUCANOL [Concomitant]
     Indication: CANDIDIASIS

REACTIONS (4)
  - ORAL CANDIDIASIS [None]
  - DYSPHAGIA [None]
  - CHOKING [None]
  - COUGH [None]
